FAERS Safety Report 6159045-6 (Version None)
Quarter: 2009Q2

REPORT INFORMATION
  Report Type: 
  Country: None (occurrence: None)
  Receive Date: 20090417
  Receipt Date: 20090407
  Transmission Date: 20091009
  Serious: Yes (Life-Threatening, Hospitalization)
  Sender: FDA-Public Use
  Company Number: JP-PFIZER INC-2009199137

PATIENT

DRUGS (4)
  1. CAMPTOSAR [Suspect]
     Dosage: 180 MG, UNK
     Route: 041
     Dates: start: 20090218, end: 20090311
  2. FLUOROURACIL [Suspect]
     Dosage: 500 MG, 2X/DAY
     Route: 040
     Dates: start: 20090218, end: 20090311
  3. FLUOROURACIL [Suspect]
     Dosage: 3000 MG, UNK
     Route: 041
     Dates: start: 20090218, end: 20090311
  4. CALCIUM LEVOFOLINATE [Concomitant]
     Dosage: UNK
     Route: 041
     Dates: start: 20090218, end: 20090311

REACTIONS (3)
  - GASTROINTESTINAL NECROSIS [None]
  - HAEMATOCHEZIA [None]
  - PNEUMATOSIS INTESTINALIS [None]
